FAERS Safety Report 7178391-0 (Version None)
Quarter: 2010Q4

REPORT INFORMATION
  Report Type: 
  Country: None (occurrence: None)
  Receive Date: 20101220
  Receipt Date: 20101207
  Transmission Date: 20110411
  Serious: Yes (Hospitalization)
  Sender: FDA-Public Use
  Company Number: US-WATSON-2010-15965

PATIENT
  Age: 43 Year
  Sex: Female

DRUGS (1)
  1. METHYLPREDNISOLONE ACETATE [Suspect]
     Indication: CHRONIC OBSTRUCTIVE PULMONARY DISEASE
     Dosage: 60 MG, Q6H
     Route: 042

REACTIONS (2)
  - ACUTE RESPIRATORY FAILURE [None]
  - MYOPATHY [None]
